FAERS Safety Report 24612750 (Version 1)
Quarter: 2024Q4

REPORT INFORMATION
  Report Type: Report from Study
  Country: CA (occurrence: CA)
  Receive Date: 20241113
  Receipt Date: 20241113
  Transmission Date: 20250115
  Serious: Yes (Other)
  Sender: ABBVIE
  Company Number: CA-ABBVIE-5993230

PATIENT
  Sex: Male

DRUGS (1)
  1. RINVOQ [Suspect]
     Active Substance: UPADACITINIB
     Indication: Crohn^s disease
     Route: 048
     Dates: start: 20231202

REACTIONS (7)
  - Anastomotic stenosis [Unknown]
  - Anal abscess [Unknown]
  - Rectal ulcer [Unknown]
  - Fistula [Unknown]
  - Frequent bowel movements [Unknown]
  - Weight decreased [Unknown]
  - Fibrosis [Unknown]

NARRATIVE: CASE EVENT DATE: 20240401
